FAERS Safety Report 8791471 (Version 1)
Quarter: 2012Q4

REPORT INFORMATION
  Report Type: Spontaneous
  Country: US (occurrence: None)
  Receive Date: 20120914
  Receipt Date: 20120914
  Transmission Date: 20130627
  Serious: Yes (Life-Threatening)
  Sender: FDA-Public Use
  Company Number: None

PATIENT
  Age: 81 Year
  Sex: Female
  Weight: 77.1 kg

DRUGS (2)
  1. RIVAROXABAN [Suspect]
     Indication: ATRIAL FIBRILLATION
     Route: 048
     Dates: start: 201204, end: 20120726
  2. CLOPIDOGREL [Suspect]
     Indication: CORONARY ARTERY DISEASE
     Route: 048
     Dates: start: 201204, end: 20120726

REACTIONS (5)
  - Asthenia [None]
  - Presyncope [None]
  - Haemoglobin decreased [None]
  - Occult blood positive [None]
  - Gastrointestinal haemorrhage [None]
